FAERS Safety Report 26131227 (Version 1)
Quarter: 2025Q4

REPORT INFORMATION
  Report Type: Spontaneous
  Country: US (occurrence: US)
  Receive Date: 20251208
  Receipt Date: 20251208
  Transmission Date: 20260119
  Serious: No
  Sender: FOUNDATION CONSUMER HEALTHCARE, LLC
  Company Number: US-FOUNDATIONCONSUMERHC-2025-US-041734

PATIENT
  Age: 26 Year
  Sex: Female
  Weight: 53.52 kg

DRUGS (2)
  1. AFTERA [Suspect]
     Active Substance: LEVONORGESTREL
     Indication: Post coital contraception
     Dosage: 1.5 MG X 2 DOSES
     Route: 048
     Dates: start: 20250822, end: 20250826
  2. VITAMINS [Concomitant]
     Active Substance: VITAMINS

REACTIONS (6)
  - Vaginal discharge [Recovered/Resolved]
  - Fungal infection [Recovered/Resolved]
  - Menstruation delayed [Not Recovered/Not Resolved]
  - Dysmenorrhoea [Recovered/Resolved]
  - Intentional product misuse [Recovered/Resolved]
  - Inappropriate schedule of product administration [Recovered/Resolved]

NARRATIVE: CASE EVENT DATE: 20250826
